FAERS Safety Report 8179927-3 (Version None)
Quarter: 2012Q1

REPORT INFORMATION
  Report Type: 
  Country: None (occurrence: None)
  Receive Date: 20120302
  Receipt Date: 20120220
  Transmission Date: 20120608
  Serious: Yes (Other)
  Sender: FDA-Public Use
  Company Number: FR-BRISTOL-MYERS SQUIBB COMPANY-16407611

PATIENT
  Age: 34 Year
  Sex: Male

DRUGS (1)
  1. ATAZANAVIR [Suspect]
     Indication: HIV INFECTION
     Dates: start: 20090101, end: 20100601

REACTIONS (2)
  - HAEMOLYSIS [None]
  - HYPERBILIRUBINAEMIA [None]
